FAERS Safety Report 14318611 (Version 1)
Quarter: 2017Q4

REPORT INFORMATION
  Report Type: Spontaneous
  Country: GR (occurrence: GR)
  Receive Date: 20171222
  Receipt Date: 20171222
  Transmission Date: 20180321
  Serious: Yes (Life-Threatening, Hospitalization, Other)
  Sender: FDA-Public Use
  Company Number: GR-MYLANLABS-2017M1078523

PATIENT
  Age: 30 Year
  Sex: Male

DRUGS (3)
  1. PALIPERIDONE. [Suspect]
     Active Substance: PALIPERIDONE
     Indication: SCHIZOPHRENIA
     Dosage: FOR 2 MONTHS
     Route: 048
  2. HALOPERIDOL. [Suspect]
     Active Substance: HALOPERIDOL
     Indication: SCHIZOPHRENIA
     Dosage: 10 MG
     Route: 042
  3. PALIPERIDONE. [Suspect]
     Active Substance: PALIPERIDONE
     Indication: SCHIZOPHRENIA
     Dosage: 150 MG, MONTHLY
     Route: 030

REACTIONS (13)
  - Respiratory arrest [Recovering/Resolving]
  - Inflammation [Recovering/Resolving]
  - Disease recurrence [Recovering/Resolving]
  - Fall [Recovered/Resolved]
  - Pharyngeal disorder [Recovering/Resolving]
  - Coma [Recovered/Resolved]
  - Respiratory tract infection [Recovering/Resolving]
  - Seizure [Recovering/Resolving]
  - Angioedema [Recovering/Resolving]
  - Upper airway obstruction [Recovering/Resolving]
  - Aspiration [Recovering/Resolving]
  - Therapeutic product cross-reactivity [Recovering/Resolving]
  - Hypertrophy [Recovering/Resolving]
